FAERS Safety Report 6469832-2 (Version None)
Quarter: 2009Q4

REPORT INFORMATION
  Report Type: 
  Country: None (occurrence: None)
  Receive Date: 20091203
  Receipt Date: 20071205
  Transmission Date: 20100525
  Serious: Yes (Death)
  Sender: FDA-Public Use
  Company Number: TR-ELI_LILLY_AND_COMPANY-TR200712001142

PATIENT
  Sex: Female
  Weight: 90 kg

DRUGS (4)
  1. HUMALOG [Suspect]
     Indication: TYPE 2 DIABETES MELLITUS
     Dosage: 15 U, EACH MORNING
     Route: 058
     Dates: start: 20071001
  2. HUMALOG [Suspect]
     Dosage: 15 U, AT NOON
     Route: 058
     Dates: start: 20071001
  3. HUMALOG [Suspect]
     Dosage: 25 U, EACH EVENING
     Route: 058
     Dates: start: 20071001
  4. ANTIHYPERTENSIVES [Concomitant]
     Indication: HYPERTENSION
     Dosage: UNK, UNKNOWN
     Route: 065

REACTIONS (2)
  - DIABETIC HYPERGLYCAEMIC COMA [None]
  - RENAL FAILURE [None]
